FAERS Safety Report 5363545-6 (Version None)
Quarter: 2007Q2

REPORT INFORMATION
  Report Type: 
  Country: None (occurrence: None)
  Receive Date: 20070618
  Receipt Date: 20070601
  Transmission Date: 20071010
  Serious: Yes (Life-Threatening)
  Sender: FDA-Public Use
  Company Number: 156977ISR

PATIENT
  Age: 59 Year
  Sex: Female

DRUGS (1)
  1. CEFTRIAXONE [Suspect]

REACTIONS (5)
  - ERYTHEMA [None]
  - HYPOTENSION [None]
  - MALAISE [None]
  - PSYCHOMOTOR HYPERACTIVITY [None]
  - SYNCOPE [None]
